FAERS Safety Report 6085931-1 (Version None)
Quarter: 2009Q1

REPORT INFORMATION
  Report Type: 
  Country: None (occurrence: None)
  Receive Date: 20090217
  Receipt Date: 20090217
  Transmission Date: 20090719
  Serious: Yes (Other)
  Sender: FDA-Public Use
  Company Number: None

PATIENT
  Age: 24 Year
  Sex: Female
  Weight: 58.9676 kg

DRUGS (1)
  1. PAROXETINE HCL [Suspect]
     Indication: SOCIAL PHOBIA
     Dosage: 30MG DAILY PO
     Route: 048
     Dates: start: 20030701, end: 20090216

REACTIONS (4)
  - CHILLS [None]
  - IMPAIRED WORK ABILITY [None]
  - MOOD SWINGS [None]
  - MUSCLE TWITCHING [None]
